FAERS Safety Report 26152647 (Version 1)
Quarter: 2025Q4

REPORT INFORMATION
  Report Type: Report from Study
  Country: US (occurrence: US)
  Receive Date: 20251214
  Receipt Date: 20251214
  Transmission Date: 20260117
  Serious: Yes (Other)
  Sender: JOHNSON AND JOHNSON
  Company Number: US-JNJFOC-20251211066

PATIENT

DRUGS (14)
  1. TECVAYLI [Suspect]
     Active Substance: TECLISTAMAB-CQYV
     Indication: Product used for unknown indication
     Dosage: C1D12
  2. TECVAYLI [Suspect]
     Active Substance: TECLISTAMAB-CQYV
     Dosage: HAD STEP UP C1D1
  3. TECVAYLI [Suspect]
     Active Substance: TECLISTAMAB-CQYV
     Dosage: HAD STEP UP C1D3
  4. TECVAYLI [Suspect]
     Active Substance: TECLISTAMAB-CQYV
     Dosage: HAD STEP UP C1D5
  5. TECVAYLI [Suspect]
     Active Substance: TECLISTAMAB-CQYV
     Dosage: C1D19
  6. TECVAYLI [Suspect]
     Active Substance: TECLISTAMAB-CQYV
     Dosage: C1D26
  7. TECVAYLI [Suspect]
     Active Substance: TECLISTAMAB-CQYV
     Dosage: C2D1
  8. TECVAYLI [Suspect]
     Active Substance: TECLISTAMAB-CQYV
     Dosage: C2D8
  9. TECVAYLI [Suspect]
     Active Substance: TECLISTAMAB-CQYV
     Dosage: C2D15
  10. TECVAYLI [Suspect]
     Active Substance: TECLISTAMAB-CQYV
     Dosage: C2D22
  11. TECVAYLI [Suspect]
     Active Substance: TECLISTAMAB-CQYV
     Dosage: C3D1
  12. TECVAYLI [Suspect]
     Active Substance: TECLISTAMAB-CQYV
     Dosage: C3D8
  13. TECVAYLI [Suspect]
     Active Substance: TECLISTAMAB-CQYV
     Dosage: C3D15
  14. TECVAYLI [Suspect]
     Active Substance: TECLISTAMAB-CQYV
     Dosage: C3D22

REACTIONS (2)
  - Cytokine release syndrome [Unknown]
  - Neutrophil count decreased [Unknown]
